FAERS Safety Report 7820512 (Version 39)
Quarter: 2018Q1

REPORT INFORMATION
  Report Type: Report from Study
  Country: CA (occurrence: CA)
  Receive Date: 20110221
  Receipt Date: 20180108
  Transmission Date: 20180509
  Serious: Yes (Other)
  Sender: FDA-Public Use
  Company Number: PHHY2010CA08786

PATIENT
  Age: 71 Year
  Sex: Female

DRUGS (4)
  1. SANDOSTATIN LAR DEPOT [Suspect]
     Active Substance: OCTREOTIDE ACETATE
     Dosage: 20 MG, EVERY 4 WEEKS
     Route: 030
     Dates: start: 20111014
  2. LIPIDIL EZ [Concomitant]
     Active Substance: FENOFIBRATE
     Indication: PRODUCT USED FOR UNKNOWN INDICATION
     Dosage: 145 MG, EVERY EVENING(Q PM / IN THE EVERY EVENING)
     Route: 048
  3. SANDOSTATIN LAR DEPOT [Suspect]
     Active Substance: OCTREOTIDE ACETATE
     Indication: CARCINOID TUMOUR
     Dosage: 30 MG ONCE A MONTH
     Route: 030
     Dates: start: 20060220
  4. SANDOSTATIN LAR DEPOT [Suspect]
     Active Substance: OCTREOTIDE ACETATE
     Dosage: 20 MG, QMO
     Route: 030
     Dates: start: 20080507

REACTIONS (14)
  - Blood pressure systolic increased [Unknown]
  - Hair growth abnormal [Unknown]
  - Musculoskeletal pain [Unknown]
  - Injection site pain [Unknown]
  - Constipation [Unknown]
  - Injection site induration [Unknown]
  - Gastroenteritis [Unknown]
  - Vitamin B12 deficiency [Unknown]
  - Carcinoembryonic antigen increased [Unknown]
  - Postoperative adhesion [Unknown]
  - Injection site mass [Unknown]
  - Alopecia [Unknown]
  - Blood pressure diastolic decreased [Unknown]
  - Influenza [Unknown]

NARRATIVE: CASE EVENT DATE: 201407
